FAERS Safety Report 24140787 (Version 2)
Quarter: 2024Q3

REPORT INFORMATION
  Report Type: Spontaneous
  Country: JP (occurrence: JP)
  Receive Date: 20240726
  Receipt Date: 20240823
  Transmission Date: 20241016
  Serious: Yes (Hospitalization)
  Sender: MACLEODS
  Company Number: JP-MLMSERVICE-20240709-PI124619-00050-4

PATIENT

DRUGS (2)
  1. AMLODIPINE [Suspect]
     Active Substance: AMLODIPINE BESYLATE
     Indication: Product used for unknown indication
     Dosage: ONCE IN THE MORNING
     Route: 048
  2. MAGNESIUM OXIDE [Suspect]
     Active Substance: MAGNESIUM OXIDE
     Indication: Product used for unknown indication
     Dosage: 500 MG TABLET, 2 TABS, TWICE IN THE MORNING AND EVENING.
     Route: 048

REACTIONS (1)
  - BRASH syndrome [Recovered/Resolved]
